FAERS Safety Report 16462388 (Version 8)
Quarter: 2020Q1

REPORT INFORMATION
  Report Type: Report from Study
  Country: JP (occurrence: JP)
  Receive Date: 20190621
  Receipt Date: 20200305
  Transmission Date: 20200409
  Serious: Yes (Death, Hospitalization)
  Sender: FDA-Public Use
  Company Number: JP-PFIZER INC-2019258557

PATIENT
  Age: 69 Year
  Sex: Female
  Weight: 53.3 kg

DRUGS (31)
  1. CRESTOR OD [Concomitant]
     Active Substance: ROSUVASTATIN CALCIUM
     Indication: DYSLIPIDAEMIA
     Dosage: 2.5 MG, 1X/DAY
     Route: 048
     Dates: start: 20181126, end: 20181202
  2. CODEINE PHOSPHATE [Concomitant]
     Active Substance: CODEINE PHOSPHATE
     Dosage: 80 MG, 4X/DAY
     Route: 048
     Dates: start: 20190109, end: 20190318
  3. ABRAXANE [Concomitant]
     Active Substance: PACLITAXEL
     Indication: NON-SMALL CELL LUNG CANCER
     Dosage: 145.9 MG, 1X/DAY
     Route: 042
     Dates: start: 20190131, end: 20190131
  4. GLYCEREB [Concomitant]
     Active Substance: FRUCTOSE\GLYCERIN
     Dosage: 200 ML, 1X/DAY
     Route: 042
     Dates: start: 20190219, end: 20190304
  5. DEXART [Concomitant]
     Active Substance: DEXAMETHASONE SODIUM PHOSPHATE
     Dosage: 6.6 MG, 1X/DAY
     Route: 041
     Dates: start: 20190207, end: 20190207
  6. BAKTAR [Concomitant]
     Active Substance: SULFAMETHOXAZOLE\TRIMETHOPRIM
     Indication: PROPHYLAXIS
     Dosage: 1 DF, 1X/DAY
     Route: 048
     Dates: start: 20180830, end: 20190308
  7. CODEINE PHOSPHATE [Concomitant]
     Active Substance: CODEINE PHOSPHATE
     Indication: NON-SMALL CELL LUNG CANCER
     Dosage: 20 MG, AS NEEDED
     Route: 048
     Dates: start: 20181225
  8. OPSO [Concomitant]
     Active Substance: MORPHINE HYDROCHLORIDE
     Indication: NON-SMALL CELL LUNG CANCER
     Dosage: 5 MG, AS NEEDED
     Route: 048
     Dates: start: 20190115
  9. LINOLOSAL [Concomitant]
     Active Substance: BETAMETHASONE SODIUM PHOSPHATE
     Dosage: 2 MG, 1X/DAY
     Route: 042
     Dates: start: 20190219, end: 20190304
  10. GENINAX [Concomitant]
     Active Substance: GARENOXACIN MESYLATE
     Indication: PNEUMONIA
     Dosage: 400 MG, 1X/DAY
     Route: 048
     Dates: start: 20181225, end: 20190103
  11. TRANEXAMIC ACID. [Concomitant]
     Active Substance: TRANEXAMIC ACID
     Indication: NON-SMALL CELL LUNG CANCER
     Dosage: 750 MG, 3X/DAY
     Route: 048
     Dates: start: 20190118, end: 20190123
  12. LORLATINIB [Suspect]
     Active Substance: LORLATINIB
     Dosage: 100 MG, 1X/DAY
     Route: 048
     Dates: start: 20190214, end: 20190304
  13. DEXART [Concomitant]
     Active Substance: DEXAMETHASONE SODIUM PHOSPHATE
     Indication: PROPHYLAXIS
     Dosage: 6.6 MG, 1X/DAY
     Route: 041
     Dates: start: 20190131, end: 20190131
  14. CRESTOR OD [Concomitant]
     Active Substance: ROSUVASTATIN CALCIUM
     Dosage: 5.0 MG, 1X/DAY
     Route: 048
     Dates: start: 20181203, end: 20181212
  15. ROSUVASTATIN. [Concomitant]
     Active Substance: ROSUVASTATIN
     Indication: DYSLIPIDAEMIA
     Dosage: 5.0 MG, 1X/DAY
     Route: 048
     Dates: start: 20190115, end: 20190308
  16. MAGMITT [Concomitant]
     Active Substance: MAGNESIUM OXIDE
     Indication: CONSTIPATION
     Dosage: 990 MG, 3X/DAY
     Route: 048
     Dates: start: 20190109, end: 20190217
  17. NEXIUM [Concomitant]
     Active Substance: ESOMEPRAZOLE MAGNESIUM
     Indication: PROPHYLAXIS
     Dosage: 20 MG, 1X/DAY
     Route: 048
     Dates: start: 20171017, end: 20190318
  18. BETAMETHASONE. [Concomitant]
     Active Substance: BETAMETHASONE
     Indication: BRAIN OEDEMA
     Dosage: 2 MG, 1X/DAY
     Route: 048
     Dates: start: 20181203, end: 20190109
  19. CRESTOR OD [Concomitant]
     Active Substance: ROSUVASTATIN CALCIUM
     Dosage: 7.5 MG, 1X/DAY
     Route: 048
     Dates: start: 20181213, end: 20181226
  20. LINOLOSAL [Concomitant]
     Active Substance: BETAMETHASONE SODIUM PHOSPHATE
     Indication: NON-SMALL CELL LUNG CANCER
     Dosage: 2 MG, 2X/DAY
     Route: 042
     Dates: start: 20190214, end: 20190218
  21. THYRADIN S [Concomitant]
     Active Substance: LEVOTHYROXINE SODIUM
     Indication: HYPOTHYROIDISM
     Dosage: 50 UG, 1X/DAY
     Route: 048
     Dates: start: 20171207, end: 20190318
  22. LORLATINIB [Suspect]
     Active Substance: LORLATINIB
     Indication: NON-SMALL CELL LUNG CANCER
     Dosage: 100 MG, 1X/DAY
     Route: 048
     Dates: start: 20181122, end: 20190106
  23. DENOTAS [Concomitant]
     Active Substance: CALCIUM CARBONATE\CHOLECALCIFEROL\MAGNESIUM CARBONATE
     Indication: PROPHYLAXIS
     Dosage: 2 DF, 1X/DAY
     Route: 048
     Dates: start: 20170720, end: 20190308
  24. CRESTOR OD [Concomitant]
     Active Substance: ROSUVASTATIN CALCIUM
     Dosage: 10 MG, 1X/DAY
     Route: 048
     Dates: start: 20181227, end: 20190107
  25. CRESTOR OD [Concomitant]
     Active Substance: ROSUVASTATIN CALCIUM
     Dosage: 5.0 MG, 1X/DAY
     Route: 048
     Dates: start: 20190108, end: 20190114
  26. AMITIZA [Concomitant]
     Active Substance: LUBIPROSTONE
     Indication: CONSTIPATION
     Dosage: 48 UG, 2X/DAY
     Route: 048
     Dates: start: 20190214, end: 20190318
  27. ALECENSA [Concomitant]
     Active Substance: ALECTINIB HYDROCHLORIDE
     Indication: NON-SMALL CELL LUNG CANCER
     Dosage: 600 MG, 2X/DAY
     Route: 048
     Dates: start: 20190108, end: 20190109
  28. OLOPATADINE HYDROCHLORIDE OD [Concomitant]
     Indication: DRUG ERUPTION
     Dosage: 10 MG, 2X/DAY
     Route: 048
     Dates: start: 20190110, end: 20190122
  29. CARBAZOCHROME SODIUM SULFONATE [Concomitant]
     Active Substance: CARBAZOCHROME SODIUM SULFONATE
     Indication: NON-SMALL CELL LUNG CANCER
     Dosage: 30 MG, 3X/DAY
     Route: 048
     Dates: start: 20190118, end: 20190123
  30. ABRAXANE [Concomitant]
     Active Substance: PACLITAXEL
     Dosage: 145.9 MG, 1X/DAY
     Route: 042
     Dates: start: 20190207, end: 20190207
  31. GLYCEREB [Concomitant]
     Active Substance: FRUCTOSE\GLYCERIN
     Indication: NON-SMALL CELL LUNG CANCER
     Dosage: 200 ML, 2X/DAY
     Route: 042
     Dates: start: 20190214, end: 20190218

REACTIONS (2)
  - Malaise [Recovering/Resolving]
  - Neoplasm progression [Fatal]

NARRATIVE: CASE EVENT DATE: 20190101
